FAERS Safety Report 6300972-4 (Version None)
Quarter: 2009Q3

REPORT INFORMATION
  Report Type: 
  Country: None (occurrence: None)
  Receive Date: 20090807
  Receipt Date: 20090727
  Transmission Date: 20100115
  Serious: Yes (Other)
  Sender: FDA-Public Use
  Company Number: CA-JNJFOC-20090709007

PATIENT
  Age: 54 Year
  Sex: Male
  Weight: 108 kg

DRUGS (2)
  1. REMICADE [Suspect]
     Route: 042
  2. REMICADE [Suspect]
     Indication: PSORIASIS
     Dosage: 6 VIALS
     Route: 042

REACTIONS (6)
  - ABASIA [None]
  - CHILLS [None]
  - GOUT [None]
  - PAIN IN EXTREMITY [None]
  - PYREXIA [None]
  - THERAPEUTIC RESPONSE DECREASED [None]
